FAERS Safety Report 23679315 (Version 2)
Quarter: 2024Q2

REPORT INFORMATION
  Report Type: Spontaneous
  Country: AR (occurrence: AR)
  Receive Date: 20240327
  Receipt Date: 20240415
  Transmission Date: 20240716
  Serious: No
  Sender: FDA-Public Use
  Company Number: AR-PFIZER INC-PV202400038748

PATIENT
  Age: 14 Year
  Sex: Male

DRUGS (1)
  1. GENOTROPIN [Suspect]
     Active Substance: SOMATROPIN
     Indication: Short stature
     Dosage: 0.6 TO 1 MG, 6  TIMES PER WEEK
     Dates: start: 20151021

REACTIONS (3)
  - Device mechanical issue [Unknown]
  - Device information output issue [Unknown]
  - Poor quality device used [Unknown]
